FAERS Safety Report 23962185 (Version 2)
Quarter: 2024Q4

REPORT INFORMATION
  Report Type: Report from Study
  Country: FR (occurrence: FR)
  Receive Date: 20240611
  Receipt Date: 20241118
  Transmission Date: 20250114
  Serious: Yes (Other)
  Sender: MERCK KGAA
  Company Number: FR-Merck Healthcare KGaA-2024030358

PATIENT
  Sex: Female

DRUGS (3)
  1. LEVOTHYROXINE [Suspect]
     Active Substance: LEVOTHYROXINE
     Indication: Blood thyroid stimulating hormone abnormal
     Dosage: 50 UNSPECIFIED UNITS
     Dates: end: 202408
  2. LEVOTHYROXINE [Suspect]
     Active Substance: LEVOTHYROXINE
     Dosage: 37 UNSPECIFIED UNITS
     Dates: start: 202408, end: 202409
  3. LEVOTHYROXINE [Suspect]
     Active Substance: LEVOTHYROXINE
     Dosage: 50 UNSPECIFIED UNITS
     Dates: start: 202409

REACTIONS (7)
  - Papillary thyroid cancer [Unknown]
  - Autoimmune thyroiditis [Unknown]
  - Leukopenia [Unknown]
  - Oropharyngeal pain [Unknown]
  - Productive cough [Unknown]
  - Dysphagia [Unknown]
  - Antinuclear antibody positive [Unknown]
